FAERS Safety Report 10873215 (Version 1)
Quarter: 2015Q1

REPORT INFORMATION
  Report Type: Report from Study
  Country: US (occurrence: US)
  Receive Date: 20150227
  Receipt Date: 20150227
  Transmission Date: 20150721
  Serious: Yes (Hospitalization)
  Sender: FDA-Public Use
  Company Number: US-ROCHE-596512

PATIENT
  Age: 46 Year
  Sex: Female
  Weight: 80.2 kg

DRUGS (39)
  1. BC [Concomitant]
     Active Substance: ASPIRIN\CAFFEINE
     Route: 048
     Dates: start: 1990, end: 20070101
  2. VITAMIN B12 [Concomitant]
     Active Substance: CYANOCOBALAMIN
     Route: 048
  3. ACTONEL [Concomitant]
     Active Substance: RISEDRONATE SODIUM
     Dosage: DRUG: ACTENOL, FREQ: OFF WEEK
     Route: 048
     Dates: start: 20050701, end: 200606
  4. TOCILIZUMAB [Suspect]
     Active Substance: TOCILIZUMAB
     Indication: RHEUMATOID ARTHRITIS
     Dosage: FORM: INFUSION
     Route: 042
  5. AUGMENTIN XR [Concomitant]
     Active Substance: AMOXICILLIN\CLAVULANATE POTASSIUM
     Route: 048
     Dates: start: 20060626, end: 20060707
  6. TYLENOL COLD PRODUCT NOS [Concomitant]
     Indication: UPPER RESPIRATORY TRACT INFECTION
     Dosage: 2 TSP EVERY 4 HOURS
     Route: 048
     Dates: start: 20080117, end: 20080210
  7. FOLIC ACID. [Concomitant]
     Active Substance: FOLIC ACID
     Route: 048
     Dates: start: 20050301, end: 20070210
  8. BC [Concomitant]
     Active Substance: ASPIRIN\CAFFEINE
     Dosage: TOTAL DAILY DOSE: 2 PACKS
     Route: 048
     Dates: start: 20070101, end: 200806
  9. LEVAQUIN [Concomitant]
     Active Substance: LEVOFLOXACIN
     Route: 048
     Dates: start: 20050723, end: 20050730
  10. EPSOM SALT [Concomitant]
     Active Substance: MAGNESIUM SULFATE
     Dosage: TOTAL DAILY DOSE: TWO TABLESPOONSFUL
     Route: 048
  11. TOCILIZUMAB [Suspect]
     Active Substance: TOCILIZUMAB
     Route: 042
  12. PREDNISONE. [Concomitant]
     Active Substance: PREDNISONE
     Route: 048
  13. PREDNISONE. [Concomitant]
     Active Substance: PREDNISONE
     Route: 048
     Dates: start: 20051203, end: 20080918
  14. ATENOLOL. [Concomitant]
     Active Substance: ATENOLOL
     Indication: HYPERTENSION
     Route: 048
  15. PREPARATION H NOS [Concomitant]
     Active Substance: COCOA BUTTER\PETROLATUM\PHENYLEPHRINE HYDROCHLORIDE\PHENYLEPHRINE HYDROCHLORIDE OR MINERAL OIL
     Dosage: 1 APPLICATION BID
     Route: 061
     Dates: start: 20070117, end: 20070120
  16. PREDNISONE. [Concomitant]
     Active Substance: PREDNISONE
     Route: 048
  17. IBUPROFEN. [Concomitant]
     Active Substance: IBUPROFEN
     Route: 048
  18. VICKS NYQUIL [Concomitant]
     Active Substance: ACETAMINOPHEN\DEXTROMETHORPHAN HYDROBROMIDE\DOXYLAMINE SUCCINATE
     Dosage: DOSE: 2T PRN
     Route: 048
     Dates: start: 20060301, end: 20060321
  19. FOSAMAX [Concomitant]
     Active Substance: ALENDRONATE SODIUM
     Dosage: DRUG REPORTED AS FOSAMAX D
     Route: 048
  20. AMBIEN [Concomitant]
     Active Substance: ZOLPIDEM TARTRATE
     Indication: INSOMNIA
     Route: 048
  21. VICODIN [Concomitant]
     Active Substance: ACETAMINOPHEN\HYDROCODONE BITARTRATE
     Indication: PAIN
     Dosage: DOSE: 5 MG/500 MG
     Route: 048
     Dates: start: 20080917, end: 20080930
  22. VICODIN [Concomitant]
     Active Substance: ACETAMINOPHEN\HYDROCODONE BITARTRATE
     Dosage: TDD: 5 MG/500 MG
     Route: 048
  23. PEPTOL [Concomitant]
     Dosage: DRUG REPORTED AS PEPTOL BESMOL
     Route: 048
  24. RESTORIL (UNITED STATES) [Concomitant]
     Indication: INSOMNIA
     Dosage: DRUG: RESTEROL (TAMAZEPAM)
     Route: 048
     Dates: start: 20070612, end: 20071213
  25. DARVOCET [Concomitant]
     Active Substance: ACETAMINOPHEN\PROPOXYPHENE HYDROCHLORIDE
     Route: 048
     Dates: start: 20071231, end: 20080130
  26. LUNESTA [Concomitant]
     Active Substance: ESZOPICLONE
     Indication: INSOMNIA
     Route: 048
     Dates: start: 20071214, end: 20080615
  27. AUGMENTIN [Concomitant]
     Active Substance: AMOXICILLIN\CLAVULANATE POTASSIUM
     Indication: UPPER RESPIRATORY TRACT INFECTION
     Route: 048
     Dates: start: 20080207, end: 20080214
  28. PREDNISONE. [Concomitant]
     Active Substance: PREDNISONE
     Route: 048
     Dates: start: 20050919, end: 20051202
  29. LEVAQUIN [Concomitant]
     Active Substance: LEVOFLOXACIN
     Route: 048
     Dates: start: 20080819, end: 20080930
  30. LEVAQUIN [Concomitant]
     Active Substance: LEVOFLOXACIN
     Route: 048
  31. IBUPROFEN. [Concomitant]
     Active Substance: IBUPROFEN
     Indication: PAIN
     Route: 048
     Dates: start: 200504, end: 200512
  32. IBUPROFEN. [Concomitant]
     Active Substance: IBUPROFEN
     Route: 048
  33. MAGNESIUM CITRATE. [Concomitant]
     Active Substance: MAGNESIUM CITRATE
     Dosage: DOSE REPORTED AS ^4 OZ^ PRN
     Route: 048
  34. ASA [Concomitant]
     Active Substance: ASPIRIN
     Route: 048
     Dates: start: 20060301, end: 20060321
  35. METHOTREXATE [Concomitant]
     Active Substance: METHOTREXATE
     Route: 048
  36. FOLIC ACID. [Concomitant]
     Active Substance: FOLIC ACID
     Route: 048
  37. VITAMIN E [Concomitant]
     Active Substance: .ALPHA.-TOCOPHEROL
     Dosage: TOTAL DAILY DOSE:400 IU
     Route: 048
  38. TUMS [Concomitant]
     Active Substance: CALCIUM CARBONATE
     Route: 048
  39. TOCILIZUMAB [Suspect]
     Active Substance: TOCILIZUMAB
     Indication: RHEUMATOID ARTHRITIS
     Dosage: FORM: INFUSION
     Route: 042
     Dates: start: 20050505, end: 20070405

REACTIONS (3)
  - Localised infection [Recovered/Resolved]
  - Osteomyelitis [Recovered/Resolved]
  - Skin ulcer [Recovered/Resolved]

NARRATIVE: CASE EVENT DATE: 20080513
